FAERS Safety Report 4926578-7 (Version None)
Quarter: 2006Q1

REPORT INFORMATION
  Report Type: 
  Country: None (occurrence: None)
  Receive Date: 20060228
  Receipt Date: 20050505
  Transmission Date: 20060701
  Serious: No
  Sender: FDA-Public Use
  Company Number: US-GLAXOSMITHKLINE-A0557407A

PATIENT
  Age: 50 Year
  Sex: Female

DRUGS (3)
  1. LAMICTAL [Suspect]
  2. EFFEXOR [Suspect]
  3. KLONOPIN [Suspect]

REACTIONS (3)
  - ARTHRALGIA [None]
  - ARTHRITIS [None]
  - OEDEMA [None]
